FAERS Safety Report 19747664 (Version 1)
Quarter: 2021Q3

REPORT INFORMATION
  Report Type: Spontaneous
  Country: US (occurrence: US)
  Receive Date: 20210823
  Receipt Date: 20210823
  Transmission Date: 20211014
  Serious: Yes (Hospitalization)
  Sender: FDA-Public Use
  Company Number: None

PATIENT
  Age: 22 Year
  Sex: Female
  Weight: 65.25 kg

DRUGS (2)
  1. VITAMIN B COMPLEX [Concomitant]
     Active Substance: CYANOCOBALAMIN\DEXPANTHENOL\NIACINAMIDE\PYRIDOXINE HYDROCHLORIDE\RIBOFLAVIN 5^-PHOSPHATE SODIUM\THIAMINE HYDROCHLORIDE\VITAMIN B COMPLEX
  2. GADAVIST [Suspect]
     Active Substance: GADOBUTROL
     Indication: CONTRAST MEDIA DEPOSITION
     Dosage: ?          QUANTITY:6.1 ML MILLILITRE(S);?
     Route: 042
     Dates: start: 20210426, end: 20210426

REACTIONS (8)
  - Blood pressure increased [None]
  - Migraine [None]
  - Trigeminal neuralgia [None]
  - Tremor [None]
  - Neuralgia [None]
  - Paraesthesia [None]
  - Gait inability [None]
  - Oxygen saturation decreased [None]

NARRATIVE: CASE EVENT DATE: 20210426
